FAERS Safety Report 20231725 (Version 2)
Quarter: 2023Q4

REPORT INFORMATION
  Report Type: Spontaneous
  Country: US (occurrence: US)
  Receive Date: 20211227
  Receipt Date: 20231027
  Transmission Date: 20240109
  Serious: No
  Sender: FDA-Public Use
  Company Number: US-AVEO ONCOLOGY-2021-AVEO-US003709

PATIENT

DRUGS (2)
  1. FOTIVDA [Suspect]
     Active Substance: TIVOZANIB HYDROCHLORIDE
     Indication: Renal cell carcinoma
     Dosage: 1.34 MG,  D 1-21, 7 DAYS OFF
     Route: 048
     Dates: start: 20211006
  2. MORPHINE [Suspect]
     Active Substance: MORPHINE

REACTIONS (1)
  - Hallucination [Unknown]
